FAERS Safety Report 11723275 (Version 3)
Quarter: 2016Q1

REPORT INFORMATION
  Report Type: Other
  Country: US (occurrence: US)
  Receive Date: 20151111
  Receipt Date: 20160111
  Transmission Date: 20160525
  Serious: Yes (Other)
  Sender: FDA-Public Use
  Company Number: US-SHIRE-US201513744

PATIENT
  Age: 49 Year
  Sex: Female

DRUGS (3)
  1. CINRYZE [Suspect]
     Active Substance: HUMAN C1-ESTERASE INHIBITOR
     Indication: HEREDITARY ANGIOEDEMA
     Dosage: 1000 UNITS, OTHER (EVERY 3 DAYS)
     Route: 042
     Dates: start: 20150226
  2. CINRYZE [Suspect]
     Active Substance: HUMAN C1-ESTERASE INHIBITOR
     Indication: PROPHYLAXIS
  3. STERILE WATER [Suspect]
     Active Substance: WATER
     Indication: MEDICATION DILUTION
     Dosage: UNK, UNKNOWN
     Route: 065

REACTIONS (4)
  - Product quality issue [Recovered/Resolved]
  - Stress [Unknown]
  - Product use issue [Recovered/Resolved]
  - Pharyngeal oedema [Unknown]

NARRATIVE: CASE EVENT DATE: 201510
